FAERS Safety Report 14027424 (Version 3)
Quarter: 2017Q4

REPORT INFORMATION
  Report Type: Report from Study
  Country: None (occurrence: TW)
  Receive Date: 20170929
  Receipt Date: 20171113
  Transmission Date: 20180321
  Serious: Yes (Hospitalization)
  Sender: FDA-Public Use
  Company Number: TW-ABBVIE-17K-153-2113053-00

PATIENT
  Age: 54 Year
  Sex: Male
  Weight: 89 kg

DRUGS (2)
  1. HUMIRA [Suspect]
     Active Substance: ADALIMUMAB
     Indication: PSORIASIS
     Route: 058
     Dates: start: 20170804, end: 20170908
  2. HUMIRA [Suspect]
     Active Substance: ADALIMUMAB
     Route: 058
     Dates: start: 20170929

REACTIONS (12)
  - Erythema [Recovering/Resolving]
  - Inflammatory marker increased [Unknown]
  - Skin exfoliation [Recovering/Resolving]
  - Cellulitis [Recovering/Resolving]
  - Arthralgia [Unknown]
  - C-reactive protein increased [Recovering/Resolving]
  - Hepatic steatosis [Unknown]
  - Leukocytosis [Unknown]
  - Lung infiltration [Unknown]
  - Dermatitis exfoliative [Recovering/Resolving]
  - Nephrolithiasis [Unknown]
  - Blood glucose increased [Not Recovered/Not Resolved]

NARRATIVE: CASE EVENT DATE: 201709
